FAERS Safety Report 16450827 (Version 1)
Quarter: 2019Q2

REPORT INFORMATION
  Report Type: Spontaneous
  Country: US (occurrence: US)
  Receive Date: 20190619
  Receipt Date: 20190619
  Transmission Date: 20190711
  Serious: Yes (Other)
  Sender: FDA-Public Use
  Company Number: US-TEVA-2019-US-1063487

PATIENT
  Sex: Female
  Weight: 128 kg

DRUGS (2)
  1. CEFALEXIN CAPSULES [Suspect]
     Active Substance: CEPHALEXIN
     Route: 065
  2. TYVASO [Concomitant]
     Active Substance: TREPROSTINIL
     Indication: PULMONARY ARTERIAL HYPERTENSION
     Dosage: 3-9 BREATHS INHALED
     Dates: start: 20190124

REACTIONS (5)
  - Hypersensitivity [Unknown]
  - Hypoxia [Unknown]
  - Pain [Unknown]
  - Dysphonia [Unknown]
  - Cough [Unknown]
